FAERS Safety Report 4274773-5 (Version None)
Quarter: 2004Q1

REPORT INFORMATION
  Report Type: 
  Country: None (occurrence: None)
  Receive Date: 20040120
  Receipt Date: 20010522
  Transmission Date: 20041129
  Serious: Yes (Hospitalization)
  Sender: FDA-Public Use
  Company Number: US-BRISTOL-MYERS SQUIBB COMPANY-10848307

PATIENT
  Age: 78 Year
  Sex: Male

DRUGS (9)
  1. PRAVASTATIN SODIUM [Suspect]
     Dosage: LAST DOSE PRIOR TO THE EVENT WAS 29APR01.
     Route: 048
     Dates: start: 20010322, end: 20010429
  2. GATIFLOXACIN [Suspect]
     Dosage: LAST DOSE PRIOR TO THE EVENT WAS 29APR01.
     Route: 048
     Dates: start: 20010405, end: 20010429
  3. ASPIRIN [Concomitant]
     Route: 048
  4. LOTENSIN [Concomitant]
     Route: 048
  5. GLYBURIDE [Concomitant]
     Route: 048
  6. ISORDIL [Concomitant]
     Route: 048
  7. GLUCOPHAGE [Concomitant]
  8. ZOLOFT [Concomitant]
     Route: 048
  9. PLAVIX [Concomitant]
     Route: 048

REACTIONS (5)
  - CEREBROVASCULAR ACCIDENT [None]
  - DEHYDRATION [None]
  - HYPERGLYCAEMIA [None]
  - LACUNAR INFARCTION [None]
  - ROAD TRAFFIC ACCIDENT [None]
